FAERS Safety Report 7776453-8 (Version None)
Quarter: 2011Q3

REPORT INFORMATION
  Report Type: 
  Country: None (occurrence: None)
  Receive Date: 20110916
  Receipt Date: 20110913
  Transmission Date: 20111222
  Serious: Yes (Other)
  Sender: FDA-Public Use
  Company Number: 2011029712

PATIENT
  Age: 61 Year
  Sex: Male
  Weight: 129.2752 kg

DRUGS (9)
  1. HIZENTRA [Suspect]
     Indication: IMMUNODEFICIENCY COMMON VARIABLE
     Dosage: SEE IMAGE
     Route: 058
     Dates: start: 20110803, end: 20110831
  2. HIZENTRA [Suspect]
     Indication: IMMUNODEFICIENCY COMMON VARIABLE
     Dosage: SEE IMAGE
     Route: 058
     Dates: start: 20110803, end: 20110831
  3. HIZENTRA [Suspect]
     Indication: IMMUNODEFICIENCY COMMON VARIABLE
     Dosage: SEE IMAGE
     Route: 058
     Dates: start: 20100915
  4. AUGMENTIN '125' [Concomitant]
  5. HIZENTRA [Suspect]
  6. LISINOPRIL [Concomitant]
  7. NORVASC [Concomitant]
  8. OXYGEN (OXYGEN) [Concomitant]
  9. OMEPRAZOLE [Concomitant]

REACTIONS (1)
  - DIVERTICULITIS [None]
